FAERS Safety Report 4523115-6 (Version None)
Quarter: 2004Q4

REPORT INFORMATION
  Report Type: 
  Country: None (occurrence: None)
  Receive Date: 20041208
  Receipt Date: 20041122
  Transmission Date: 20050328
  Serious: Yes (Hospitalization, Other)
  Sender: FDA-Public Use
  Company Number: 200410529

PATIENT
  Age: 37 Year
  Sex: Male

DRUGS (2)
  1. DYSPORT (BOTULINUM TOXIN TYPE A) [Suspect]
     Indication: MUSCLE CONTRACTIONS INVOLUNTARY
     Dosage: 150 UNITS PRN IM
     Route: 030
  2. DYSPORT (BOTULINUM TOXIN TYPE A) [Suspect]
     Indication: RECTAL PROLAPSE
     Dosage: 150 UNITS PRN IM
     Route: 030

REACTIONS (3)
  - FAECAL INCONTINENCE [None]
  - INCISIONAL HERNIA [None]
  - MEDICATION ERROR [None]
